FAERS Safety Report 9734337 (Version 1)
Quarter: 2013Q4

REPORT INFORMATION
  Report Type: Report from Study
  Country: US (occurrence: US)
  Receive Date: 20131206
  Receipt Date: 20131206
  Transmission Date: 20140711
  Serious: Yes (Death)
  Sender: FDA-Public Use
  Company Number: US-ROCHE-1315380

PATIENT
  Age: 60 Year
  Sex: Male

DRUGS (3)
  1. ZELBORAF [Suspect]
     Indication: METASTATIC MALIGNANT MELANOMA
     Route: 065
  2. DABRAFENIB [Concomitant]
     Dosage: 1L PRODUCT
     Route: 065
  3. TRAMETINIB [Concomitant]
     Dosage: 1L PRODUCT
     Route: 065

REACTIONS (1)
  - Death [Fatal]
